FAERS Safety Report 17184676 (Version 1)
Quarter: 2019Q4

REPORT INFORMATION
  Report Type: Spontaneous
  Country: US (occurrence: US)
  Receive Date: 20191127
  Receipt Date: 20191127
  Transmission Date: 20200122
  Serious: Yes (Hospitalization)
  Sender: FDA-Public Use
  Company Number: None

PATIENT
  Age: 74 Year
  Sex: Female

DRUGS (19)
  1. ALREX [Concomitant]
     Active Substance: LOTEPREDNOL ETABONATE
  2. TYLENOL [Concomitant]
     Active Substance: ACETAMINOPHEN
  3. VITAMIN C [Concomitant]
     Active Substance: ASCORBIC ACID
  4. ATORVASTATIN [Concomitant]
     Active Substance: ATORVASTATIN
  5. CELEBREX [Concomitant]
     Active Substance: CELECOXIB
  6. FLONASE ALGY SPR [Concomitant]
  7. KRILL OIL [Concomitant]
     Active Substance: DIETARY SUPPLEMENT\KRILL OIL
  8. AMLOD/VALSAR [Concomitant]
  9. ASPIRIN. [Concomitant]
     Active Substance: ASPIRIN
  10. LISINOPRIL AND HYDROCHLOROTHIAZIDE [Concomitant]
     Active Substance: HYDROCHLOROTHIAZIDE\LISINOPRIL
  11. OCALIVA [Suspect]
     Active Substance: OBETICHOLIC ACID
     Indication: PRIMARY BILIARY CHOLANGITIS
  12. BIOTIN [Concomitant]
     Active Substance: BIOTIN
  13. METOPROL TAR [Concomitant]
  14. OMEPRAZOLE. [Concomitant]
     Active Substance: OMEPRAZOLE
  15. PROLIA [Concomitant]
     Active Substance: DENOSUMAB
  16. URSODIOL POW [Concomitant]
  17. WOMENS DAILY TAB [Concomitant]
  18. B-COMPLEX/CAP VIT C [Concomitant]
  19. POSTURE SUPP MS ELAST XS [Concomitant]

REACTIONS (4)
  - Therapy cessation [None]
  - Vomiting [None]
  - Urinary tract infection [None]
  - Foot fracture [None]
